FAERS Safety Report 18206653 (Version 1)
Quarter: 2020Q3

REPORT INFORMATION
  Report Type: Spontaneous
  Country: US (occurrence: US)
  Receive Date: 20200828
  Receipt Date: 20200828
  Transmission Date: 20201103
  Serious: No
  Sender: FDA-Public Use
  Company Number: US-BEH-2020121591

PATIENT
  Age: 39 Year
  Sex: Female

DRUGS (1)
  1. HIZENTRA [Suspect]
     Active Substance: HUMAN IMMUNOGLOBULIN G
     Indication: IMMUNODEFICIENCY COMMON VARIABLE
     Dosage: 8 GRAM (40 ML), QW
     Route: 058
     Dates: start: 202006

REACTIONS (7)
  - Injection site pain [Unknown]
  - Nausea [Unknown]
  - Pyrexia [Unknown]
  - Incorrect drug administration rate [Unknown]
  - Muscle spasms [Unknown]
  - Pain [Unknown]
  - Swelling [Unknown]

NARRATIVE: CASE EVENT DATE: 202006
